FAERS Safety Report 7748946-0 (Version None)
Quarter: 2011Q3

REPORT INFORMATION
  Report Type: 
  Country: None (occurrence: None)
  Receive Date: 20110914
  Receipt Date: 20110901
  Transmission Date: 20111222
  Serious: Yes (Death)
  Sender: FDA-Public Use
  Company Number: US-CELGENEUS-163-CCAZA-11091262

PATIENT

DRUGS (2)
  1. GEMTUZUMAB [Suspect]
     Route: 065
  2. AZACITIDINE [Suspect]
     Route: 050
     Dates: start: 20101217

REACTIONS (1)
  - DISEASE PROGRESSION [None]
